FAERS Safety Report 4417163-4 (Version None)
Quarter: 2004Q3

REPORT INFORMATION
  Report Type: 
  Country: None (occurrence: None)
  Receive Date: 20040802
  Receipt Date: 20040720
  Transmission Date: 20050211
  Serious: Yes (Other)
  Sender: FDA-Public Use
  Company Number: HQWYE426126JUL04

PATIENT
  Age: 54 Year
  Sex: Female

DRUGS (1)
  1. PREMPRO [Suspect]

REACTIONS (2)
  - CHOLECYSTECTOMY [None]
  - OOPHORECTOMY [None]
